FAERS Safety Report 8884732 (Version 1)
Quarter: 2012Q4

REPORT INFORMATION
  Report Type: 
  Country: US (occurrence: US)
  Receive Date: 20121102
  Receipt Date: 20121102
  Transmission Date: 20130627
  Serious: Yes (Hospitalization)
  Sender: FDA-Public Use
  Company Number: US-BAYER-2012-112186

PATIENT
  Age: 51 Year
  Sex: Female

DRUGS (3)
  1. BETASERON [Suspect]
     Indication: RELAPSING-REMITTING MULTIPLE SCLEROSIS
     Dosage: 8 miu, QOD
     Route: 058
     Dates: start: 20060621
  2. ALEVE GELCAP [Suspect]
     Dosage: 1-2 DF, QOD
  3. IBUPROFEN [Suspect]
     Dosage: UNK

REACTIONS (1)
  - Perforated ulcer [Recovered/Resolved]
